FAERS Safety Report 8288304-6 (Version None)
Quarter: 2012Q2

REPORT INFORMATION
  Report Type: 
  Country: None (occurrence: None)
  Receive Date: 20120416
  Receipt Date: 20110831
  Transmission Date: 20120825
  Serious: Yes (Other)
  Sender: FDA-Public Use
  Company Number: US-SANOFI-AVENTIS-2011SA056238

PATIENT
  Sex: Female

DRUGS (3)
  1. CLOMID [Suspect]
     Indication: INFERTILITY
     Dosage: 4 CYCLE
     Route: 048
     Dates: start: 20070501
  2. OVIDREL [Suspect]
     Indication: INFERTILITY
     Route: 065
     Dates: start: 20070501
  3. ALL OTHER NON-THERAPEUTIC PRODUCTS [Concomitant]

REACTIONS (1)
  - ABORTION SPONTANEOUS [None]
